FAERS Safety Report 5642509-9 (Version None)
Quarter: 2008Q1

REPORT INFORMATION
  Report Type: 
  Country: None (occurrence: None)
  Receive Date: 20080227
  Receipt Date: 20080227
  Transmission Date: 20080703
  Serious: Yes (Disabling)
  Sender: FDA-Public Use
  Company Number: None

PATIENT
  Age: 71 Year
  Sex: Female
  Weight: 55.3388 kg

DRUGS (8)
  1. FOSAMAX [Suspect]
     Indication: OSTEOPOROSIS
     Dosage: 75 MG WEEK ORAL
     Route: 048
     Dates: start: 20040101, end: 20070101
  2. ACTONEL [Suspect]
     Dosage: 35MG WEEK ORAL
     Route: 048
     Dates: start: 20030101, end: 20040101
  3. PLAVIX [Concomitant]
  4. ASPIRIN [Concomitant]
  5. LIPITOR [Concomitant]
  6. XANAX [Concomitant]
  7. PRILOSEC [Concomitant]
  8. ALLOPURINOL [Concomitant]

REACTIONS (1)
  - BONE DISORDER [None]
